FAERS Safety Report 12549378 (Version 1)
Quarter: 2016Q3

REPORT INFORMATION
  Report Type: Spontaneous
  Country: US (occurrence: US)
  Receive Date: 20160712
  Receipt Date: 20160712
  Transmission Date: 20161109
  Serious: No
  Sender: FDA-Public Use
  Company Number: US-ALLERGAN-1638354US

PATIENT
  Age: 94 Year
  Sex: Male
  Weight: 75.28 kg

DRUGS (10)
  1. NORCO [Concomitant]
     Active Substance: ACETAMINOPHEN\HYDROCODONE BITARTRATE
     Indication: PAIN
     Dosage: 1 DF, Q6HR
     Route: 048
  2. ZOCOR [Concomitant]
     Active Substance: SIMVASTATIN
     Dosage: 40 MG, QD
     Route: 048
  3. BACTRIM DS [Concomitant]
     Active Substance: SULFAMETHOXAZOLE\TRIMETHOPRIM
     Dosage: 1 DF, BID
     Route: 048
  4. LEVAQUIN [Concomitant]
     Active Substance: LEVOFLOXACIN
     Dosage: 500 MG, QD
     Route: 048
  5. ASPIRIN. [Concomitant]
     Active Substance: ASPIRIN
     Dosage: 81 MG, QD
     Route: 048
  6. ACETAMINOPHEN\HYDROCODONE BITARTRATE [Concomitant]
     Active Substance: ACETAMINOPHEN\HYDROCODONE BITARTRATE
     Indication: PAIN
     Dosage: 1 DF, Q6HR
     Route: 048
  7. DALVANCE [Suspect]
     Active Substance: DALBAVANCIN
     Indication: INFECTION
     Dosage: 1000 MG, SINGLE
     Route: 042
  8. DALVANCE [Suspect]
     Active Substance: DALBAVANCIN
     Indication: CELLULITIS
  9. COZAAR [Concomitant]
     Active Substance: LOSARTAN POTASSIUM
     Dosage: 50 MG, QD
     Route: 048
  10. ALLOPURINOL. [Concomitant]
     Active Substance: ALLOPURINOL
     Dosage: 200 MG, QD
     Route: 048

REACTIONS (1)
  - Fatigue [Recovered/Resolved]

NARRATIVE: CASE EVENT DATE: 20150804
